FAERS Safety Report 19835095 (Version 2)
Quarter: 2021Q4

REPORT INFORMATION
  Report Type: Report from Study
  Country: US (occurrence: US)
  Receive Date: 20210916
  Receipt Date: 20211105
  Transmission Date: 20220303
  Serious: Yes (Hospitalization, Other)
  Sender: FDA-Public Use
  Company Number: ENDG21-05644

PATIENT
  Age: 55 Year
  Sex: Female
  Weight: 108.39 kg

DRUGS (7)
  1. RHEUMATREX [Suspect]
     Active Substance: METHOTREXATE SODIUM
     Indication: Rheumatoid arthritis
     Dosage: 15 MG, WEEKLY
     Route: 048
     Dates: start: 20170621, end: 20170922
  2. UPADACITINIB [Suspect]
     Active Substance: UPADACITINIB
     Indication: Rheumatoid arthritis
     Dosage: 15 MG, OD
     Route: 048
     Dates: start: 20170929
  3. VITAMIN A                          /00056001/ [Concomitant]
     Indication: Nutritional supplementation
     Dosage: 8000 MG, OD
     Route: 048
     Dates: start: 201704, end: 20181028
  4. VITAMIN A                          /00056001/ [Concomitant]
     Dosage: 10000 IU/KG, OD
     Route: 048
     Dates: start: 20190701
  5. VITAMIN D3 [Concomitant]
     Active Substance: CHOLECALCIFEROL
     Indication: Nutritional supplementation
     Dosage: 50000 UNITS, OD
     Route: 048
     Dates: start: 20170101, end: 20181028
  6. VITAMIN D3 [Concomitant]
     Active Substance: CHOLECALCIFEROL
     Dosage: 2000 IU/KG, OD
     Route: 048
     Dates: start: 20190701
  7. TIZANIDINE HYDROCHLORIDE [Concomitant]
     Active Substance: TIZANIDINE HYDROCHLORIDE
     Indication: Muscle spasms
     Dosage: 2 MG, TID
     Route: 048
     Dates: start: 20190926

REACTIONS (1)
  - Pelvi-ureteric obstruction [Recovered/Resolved]

NARRATIVE: CASE EVENT DATE: 20191003
